FAERS Safety Report 17204807 (Version 7)
Quarter: 2024Q4

REPORT INFORMATION
  Report Type: Report from Study
  Country: CA (occurrence: CA)
  Receive Date: 20191226
  Receipt Date: 20241101
  Transmission Date: 20250115
  Serious: Yes (Hospitalization, Other)
  Sender: TAKEDA
  Company Number: CA-TAKEDA-2019TUS059432

PATIENT
  Sex: Male

DRUGS (5)
  1. VEDOLIZUMAB [Suspect]
     Active Substance: VEDOLIZUMAB
     Indication: Crohn^s disease
     Dosage: 300 MILLIGRAM
     Route: 042
     Dates: start: 20190703, end: 20191011
  2. VEDOLIZUMAB [Suspect]
     Active Substance: VEDOLIZUMAB
     Dosage: 300 MILLIGRAM
     Route: 042
     Dates: start: 20230106
  3. VEDOLIZUMAB [Suspect]
     Active Substance: VEDOLIZUMAB
     Dosage: 300 MILLIGRAM, Q4WEEKS
     Route: 042
     Dates: start: 20240412
  4. VITAMIN D NOS [Concomitant]
     Active Substance: CHOLECALCIFEROL\ERGOCALCIFEROL
     Dosage: 100 MILLIGRAM
  5. IRON [Concomitant]
     Active Substance: IRON
     Dosage: 300 MILLIGRAM, QD

REACTIONS (4)
  - Gastrointestinal anastomotic stenosis [Unknown]
  - Ileal ulcer [Unknown]
  - Abdominal distension [Unknown]
  - Off label use [Unknown]

NARRATIVE: CASE EVENT DATE: 20190101
